FAERS Safety Report 21380002 (Version 1)
Quarter: 2022Q3

REPORT INFORMATION
  Report Type: Report from Study
  Country: US (occurrence: US)
  Receive Date: 20220927
  Receipt Date: 20220927
  Transmission Date: 20221027
  Serious: Yes (Other)
  Sender: FDA-Public Use
  Company Number: US-ABBVIE-4130340

PATIENT
  Sex: Female

DRUGS (4)
  1. IMBRUVICA [Suspect]
     Active Substance: IBRUTINIB
     Indication: Chronic lymphocytic leukaemia
     Route: 048
     Dates: start: 20210701
  2. MECLIZINE [Concomitant]
     Active Substance: MECLIZINE HYDROCHLORIDE
     Indication: Product used for unknown indication
  3. COVID VACCINE [Concomitant]
     Indication: COVID-19 immunisation
     Dosage: FREQUENCY:1 IN ONCE
     Route: 030
  4. COVID VACCINE [Concomitant]
     Indication: COVID-19 immunisation
     Dosage: FREQUENCY:1 IN ONCE?BOOSTER
     Route: 030

REACTIONS (4)
  - Loss of consciousness [Recovered/Resolved]
  - Dizziness [Not Recovered/Not Resolved]
  - Blood bilirubin increased [Not Recovered/Not Resolved]
  - Vertigo [Not Recovered/Not Resolved]
